FAERS Safety Report 6946521-9 (Version None)
Quarter: 2010Q3

REPORT INFORMATION
  Report Type: 
  Country: None (occurrence: None)
  Receive Date: 20100827
  Receipt Date: 20090806
  Transmission Date: 20110219
  Serious: No
  Sender: FDA-Public Use
  Company Number: US-ABBOTT-09P-163-0589880-00

PATIENT
  Sex: Male

DRUGS (1)
  1. NIASPAN [Suspect]
     Indication: PRODUCT USED FOR UNKNOWN INDICATION

REACTIONS (6)
  - ADVERSE DRUG REACTION [None]
  - BLOOD GLUCOSE INCREASED [None]
  - FLUID RETENTION [None]
  - RASH [None]
  - SWELLING [None]
  - URINE OUTPUT DECREASED [None]
